FAERS Safety Report 16534278 (Version 1)
Quarter: 2019Q3

REPORT INFORMATION
  Report Type: Spontaneous
  Country: US (occurrence: US)
  Receive Date: 20190704
  Receipt Date: 20190704
  Transmission Date: 20191004
  Serious: Yes (Disabling)
  Sender: FDA-Public Use
  Company Number: None

PATIENT
  Age: 67 Year
  Sex: Female
  Weight: 69 kg

DRUGS (1)
  1. DESOXYN [Suspect]
     Active Substance: METHAMPHETAMINE HYDROCHLORIDE
     Indication: NARCOLEPSY
     Route: 048
     Dates: start: 20170101, end: 20190515

REACTIONS (2)
  - Pulmonary hypertension [None]
  - Cardiac failure [None]

NARRATIVE: CASE EVENT DATE: 20190418
